FAERS Safety Report 14517759 (Version 1)
Quarter: 2018Q1

REPORT INFORMATION
  Report Type: Spontaneous
  Country: US (occurrence: US)
  Receive Date: 20180212
  Receipt Date: 20180212
  Transmission Date: 20180509
  Serious: Yes (Life-Threatening, Hospitalization, Other)
  Sender: FDA-Public Use
  Company Number: US-TORRENT-00005500

PATIENT
  Age: 32 Year
  Sex: Male

DRUGS (1)
  1. LAMOTRIGINE. [Suspect]
     Active Substance: LAMOTRIGINE
     Indication: PRODUCT USED FOR UNKNOWN INDICATION
     Route: 048

REACTIONS (8)
  - Agitation [Unknown]
  - Intentional overdose [Unknown]
  - Haemodynamic instability [Unknown]
  - Muscle rigidity [Recovered/Resolved]
  - Blood creatine phosphokinase increased [Unknown]
  - Encephalopathy [Recovered/Resolved]
  - Toxicity to various agents [Recovering/Resolving]
  - Mental disorder [Unknown]
